FAERS Safety Report 14754701 (Version 1)
Quarter: 2018Q2

REPORT INFORMATION
  Report Type: Spontaneous
  Country: US (occurrence: US)
  Receive Date: 20180413
  Receipt Date: 20180413
  Transmission Date: 20180711
  Serious: Yes (Hospitalization)
  Sender: FDA-Public Use
  Company Number: US-ASTRAZENECA-2018SE45959

PATIENT
  Sex: Female
  Weight: 65.8 kg

DRUGS (1)
  1. TUDORZA PRESSAIR [Suspect]
     Active Substance: ACLIDINIUM BROMIDE
     Indication: BRONCHIECTASIS
     Route: 055

REACTIONS (5)
  - Product quality issue [Unknown]
  - Product use in unapproved indication [Unknown]
  - Pneumonia [Recovered/Resolved]
  - Off label use [Unknown]
  - Intentional product misuse [Unknown]
